FAERS Safety Report 9900952 (Version 1)
Quarter: 2014Q1

REPORT INFORMATION
  Report Type: Report from Study
  Country: US (occurrence: US)
  Receive Date: 20140217
  Receipt Date: 20140217
  Transmission Date: 20141002
  Serious: No
  Sender: FDA-Public Use
  Company Number: US-ABBVIE-13P-163-1076751-00

PATIENT
  Sex: Female

DRUGS (3)
  1. SIMCOR [Suspect]
     Indication: PRODUCT USED FOR UNKNOWN INDICATION
  2. ASA [Concomitant]
     Indication: PRODUCT USED FOR UNKNOWN INDICATION
     Dosage: AT BEDTIME
     Route: 048
  3. NON SPECIFIED INSULIN [Concomitant]
     Indication: BLOOD GLUCOSE INCREASED

REACTIONS (3)
  - Flushing [Recovered/Resolved]
  - Pruritus [Recovered/Resolved]
  - Blood glucose increased [Unknown]
